FAERS Safety Report 4318219-7 (Version None)
Quarter: 2004Q1

REPORT INFORMATION
  Report Type: 
  Country: None (occurrence: None)
  Receive Date: 20040315
  Receipt Date: 20040202
  Transmission Date: 20041129
  Serious: No
  Sender: FDA-Public Use
  Company Number: 2004-112274-NL

PATIENT
  Age: 37 Year
  Sex: Female

DRUGS (3)
  1. MIRTAZAPINE [Suspect]
     Indication: DEPRESSION
     Dosage: 15 MG
     Route: 048
     Dates: start: 20030901
  2. VENLAFAXINE HCL [Concomitant]
  3. PAROXETINE HCL [Concomitant]

REACTIONS (6)
  - AMNESIA [None]
  - ARRHYTHMIA [None]
  - FALL [None]
  - HYPOAESTHESIA [None]
  - MUSCULAR WEAKNESS [None]
  - PYREXIA [None]
